FAERS Safety Report 10233246 (Version 3)
Quarter: 2014Q4

REPORT INFORMATION
  Report Type: Spontaneous
  Country: US (occurrence: US)
  Receive Date: 20140612
  Receipt Date: 20141015
  Transmission Date: 20150528
  Serious: Yes (Life-Threatening, Hospitalization, Disabling, Other)
  Sender: FDA-Public Use
  Company Number: US-BAYER-2014-086394

PATIENT
  Age: 26 Year
  Sex: Female
  Weight: 85 kg

DRUGS (1)
  1. MIRENA [Suspect]
     Active Substance: LEVONORGESTREL
     Indication: CONTRACEPTION
     Dosage: 20 MCG/24HR, CONT
     Route: 015
     Dates: start: 20090818, end: 20101217

REACTIONS (12)
  - Menorrhagia [None]
  - Uterine perforation [None]
  - Anxiety [None]
  - Anhedonia [None]
  - Emotional distress [None]
  - Infertility female [None]
  - General physical health deterioration [None]
  - Genital haemorrhage [None]
  - Abdominal pain lower [None]
  - Mental disorder [None]
  - Pain [None]
  - Depression [None]

NARRATIVE: CASE EVENT DATE: 201011
